FAERS Safety Report 6917725-6 (Version None)
Quarter: 2010Q3

REPORT INFORMATION
  Report Type: 
  Country: None (occurrence: None)
  Receive Date: 20100810
  Receipt Date: 20100726
  Transmission Date: 20110219
  Serious: Yes (Other)
  Sender: FDA-Public Use
  Company Number: BR-PFIZER INC-2010089144

PATIENT
  Age: 28 Year
  Sex: Female
  Weight: 65 kg

DRUGS (3)
  1. CHAMPIX [Suspect]
     Indication: SMOKING CESSATION THERAPY
     Dosage: UNK
     Route: 048
     Dates: start: 20100623, end: 20100709
  2. DORFLEX [Concomitant]
     Indication: HEADACHE
     Dosage: UNK
  3. BROMAZEPAM [Concomitant]
     Indication: DEPRESSION
     Dosage: UNK

REACTIONS (5)
  - ASTHMATIC CRISIS [None]
  - CHEST DISCOMFORT [None]
  - DEPRESSION [None]
  - NERVOUSNESS [None]
  - PALPITATIONS [None]
